FAERS Safety Report 4363615-5 (Version None)
Quarter: 2004Q2

REPORT INFORMATION
  Report Type: 
  Country: None (occurrence: None)
  Receive Date: 20040524
  Receipt Date: 20040524
  Transmission Date: 20050107
  Serious: Yes (Other)
  Sender: FDA-Public Use
  Company Number: None

PATIENT
  Sex: Female

DRUGS (1)
  1. PAXIL [Suspect]
     Indication: ANXIETY
     Dates: start: 20030701, end: 20040305

REACTIONS (7)
  - ALCOHOL INTOLERANCE [None]
  - FEELING ABNORMAL [None]
  - GASTRIC DISORDER [None]
  - HEADACHE [None]
  - INFLUENZA [None]
  - NAUSEA [None]
  - VERTIGO [None]
